FAERS Safety Report 18501216 (Version 1)
Quarter: 2020Q4

REPORT INFORMATION
  Report Type: Spontaneous
  Country: US (occurrence: US)
  Receive Date: 20201113
  Receipt Date: 20201113
  Transmission Date: 20210114
  Serious: Yes (Other)
  Sender: FDA-Public Use
  Company Number: NVSC2020US302451

PATIENT
  Age: 25 Year
  Sex: Female

DRUGS (1)
  1. LETROZOLE. [Suspect]
     Active Substance: LETROZOLE
     Indication: BORDERLINE SEROUS TUMOUR OF OVARY
     Dosage: 2.5 MG, QD
     Route: 065
     Dates: start: 201209, end: 201311

REACTIONS (3)
  - Disease progression [Unknown]
  - Borderline serous tumour of ovary [Unknown]
  - Product use in unapproved indication [Unknown]
